FAERS Safety Report 5413210-1 (Version None)
Quarter: 2007Q3

REPORT INFORMATION
  Report Type: 
  Country: None (occurrence: None)
  Receive Date: 20070814
  Receipt Date: 20070809
  Transmission Date: 20080115
  Serious: Yes (Death, Hospitalization)
  Sender: FDA-Public Use
  Company Number: PHBS2007JP12814

PATIENT
  Sex: Male

DRUGS (2)
  1. CYCLOSPORINE [Suspect]
     Indication: LIVER TRANSPLANT
     Route: 065
  2. TACROLIMUS [Suspect]
     Indication: LIVER TRANSPLANT
     Route: 065

REACTIONS (21)
  - ALANINE AMINOTRANSFERASE INCREASED [None]
  - ASPARTATE AMINOTRANSFERASE INCREASED [None]
  - BILIRUBIN CONJUGATED INCREASED [None]
  - BLOOD BILIRUBIN INCREASED [None]
  - BRAIN OEDEMA [None]
  - C-REACTIVE PROTEIN INCREASED [None]
  - CELLULITIS ORBITAL [None]
  - DEPRESSED LEVEL OF CONSCIOUSNESS [None]
  - EMBOLISM [None]
  - ENCEPHALITIS FUNGAL [None]
  - EYELID OEDEMA [None]
  - HAEMORRHAGE [None]
  - INFARCTION [None]
  - MENINGITIS [None]
  - MUCORMYCOSIS [None]
  - NECROSIS [None]
  - PYREXIA [None]
  - SINUSITIS [None]
  - THROMBOSIS [None]
  - VISUAL ACUITY REDUCED [None]
  - ZYGOMYCOSIS [None]
